FAERS Safety Report 7461474-5 (Version None)
Quarter: 2011Q2

REPORT INFORMATION
  Report Type: 
  Country: None (occurrence: None)
  Receive Date: 20110506
  Receipt Date: 20110503
  Transmission Date: 20111010
  Serious: Yes (Other)
  Sender: FDA-Public Use
  Company Number: US-PFIZER INC-2011095686

PATIENT
  Sex: Male
  Weight: 77.098 kg

DRUGS (3)
  1. DIFLUCAN [Suspect]
     Indication: CANDIDIASIS
     Dosage: UNK
     Dates: end: 20110101
  2. TRIAZOLE DERIVATIVES [Concomitant]
     Indication: AUTOIMMUNE DISORDER
     Dosage: UNK
  3. PREDNISONE [Concomitant]
     Indication: AUTOIMMUNE DISORDER
     Dosage: UNK

REACTIONS (3)
  - BLISTER [None]
  - ANGIOEDEMA [None]
  - RASH [None]
